FAERS Safety Report 7731127 (Version 2)
Quarter: 2012Q4

REPORT INFORMATION
  Report Type: 
  Country: US (occurrence: US)
  Receive Date: 20101222
  Receipt Date: 20121023
  Transmission Date: 20130627
  Serious: Yes (Hospitalization)
  Sender: FDA-Public Use
  Company Number: US-AMGEN-QUU422154

PATIENT
  Age: 63 Year
  Sex: Female
  Weight: 71.2 kg

DRUGS (5)
  1. ENBREL [Suspect]
     Indication: RHEUMATOID ARTHRITIS
     Dosage: 50 mg, qwk
     Route: 058
     Dates: start: 20090522, end: 20120116
  2. METHOTREXATE [Concomitant]
     Indication: RHEUMATOID ARTHRITIS
     Dosage: 12.5 mg, qwk
     Route: 058
     Dates: start: 20080612
  3. SIMVASTATIN [Concomitant]
     Indication: BLOOD CHOLESTEROL INCREASED
     Dosage: 20 mg, UNK
     Route: 048
  4. FOLIC ACID [Concomitant]
     Indication: PROPHYLAXIS
     Dosage: 3.5 mg, UNK
     Route: 048
     Dates: start: 20080612
  5. VITAMIN D3 [Concomitant]
     Indication: VITAMIN D DECREASED
     Dosage: 4000 IU, UNK
     Route: 048

REACTIONS (5)
  - Diverticulitis [Recovered/Resolved]
  - Back pain [Recovered/Resolved]
  - Injection site erythema [Not Recovered/Not Resolved]
  - Injection site swelling [Not Recovered/Not Resolved]
  - Rash [Not Recovered/Not Resolved]
